FAERS Safety Report 25593700 (Version 1)
Quarter: 2025Q3

REPORT INFORMATION
  Report Type: Spontaneous
  Country: US (occurrence: US)
  Receive Date: 20250722
  Receipt Date: 20250722
  Transmission Date: 20251021
  Serious: Yes (Other)
  Sender: ALEXION PHARMACEUTICALS
  Company Number: US-ASTRAZENECA-202507GLO012411US

PATIENT
  Sex: Male
  Weight: 120 kg

DRUGS (7)
  1. NEXIUM [Suspect]
     Active Substance: ESOMEPRAZOLE MAGNESIUM
  2. NORVASC [Concomitant]
     Active Substance: AMLODIPINE BESYLATE
  3. ELIQUIS [Concomitant]
     Active Substance: APIXABAN
  4. TENORMIN [Concomitant]
     Active Substance: ATENOLOL
  5. APIXABAN [Concomitant]
     Active Substance: APIXABAN
  6. BASAGLAR [Concomitant]
     Active Substance: INSULIN GLARGINE
  7. ROSUVASTATIN [Concomitant]
     Active Substance: ROSUVASTATIN

REACTIONS (1)
  - Adenocarcinoma gastric [Unknown]
